FAERS Safety Report 8270315-8 (Version None)
Quarter: 2012Q1

REPORT INFORMATION
  Report Type: 
  Country: None (occurrence: None)
  Receive Date: 20120327
  Receipt Date: 20100301
  Transmission Date: 20120608
  Serious: Yes (Other)
  Sender: FDA-Public Use
  Company Number: PHEH2010US01659

PATIENT
  Age: 68 Year
  Sex: Female

DRUGS (4)
  1. MULTI-VITAMINS [Concomitant]
  2. GLEEVEC [Suspect]
     Indication: CHRONIC EOSINOPHILIC LEUKAEMIA
     Dosage: 400 MG, DAILY, ORAL
     Route: 048
     Dates: start: 20090610
  3. ALBUTEROL [Concomitant]
  4. PRILOSEC [Concomitant]

REACTIONS (4)
  - FEELING ABNORMAL [None]
  - EOSINOPHIL COUNT INCREASED [None]
  - LACRIMATION INCREASED [None]
  - OROPHARYNGEAL PAIN [None]
